FAERS Safety Report 4332827-9 (Version None)
Quarter: 2004Q2

REPORT INFORMATION
  Report Type: 
  Country: None (occurrence: None)
  Receive Date: 20040405
  Receipt Date: 20040405
  Transmission Date: 20050107
  Serious: Yes (Hospitalization)
  Sender: FDA-Public Use
  Company Number: None

PATIENT
  Sex: Female
  Weight: 104.7809 kg

DRUGS (15)
  1. TAXOTERE [Suspect]
     Indication: SPINDLE CELL SARCOMA
     Dosage: TAXOTERE 60MG/M2
     Dates: start: 20040106
  2. TAXOTERE [Suspect]
     Indication: SPINDLE CELL SARCOMA
     Dosage: TAXOTERE 60MG/M2
     Dates: start: 20040128
  3. TAXOTERE [Suspect]
     Indication: SPINDLE CELL SARCOMA
     Dosage: TAXOTERE 60MG/M2
     Dates: start: 20040225
  4. TAXOTERE [Suspect]
     Indication: SPINDLE CELL SARCOMA
     Dosage: TAXOTERE 60MG/M2
     Dates: start: 20040318
  5. IMATINIB 400 MG PO DAILY 12/30/03-}3/25/04 [Suspect]
     Dosage: IMATINIB 400 MG PO QD
     Route: 048
     Dates: start: 20031230, end: 20040325
  6. CEFAPIME [Concomitant]
  7. PAXIL [Concomitant]
  8. ACYCLOVIR [Concomitant]
  9. DIFLUCAN [Concomitant]
  10. COMPAZINE [Concomitant]
  11. BUMAX [Concomitant]
  12. DEPAKOTE [Concomitant]
  13. CALCIUM CARBONATE [Concomitant]
  14. CARDIAZEM [Concomitant]
  15. PROTONIX [Concomitant]

REACTIONS (2)
  - FEBRILE NEUTROPENIA [None]
  - PHARYNGOLARYNGEAL PAIN [None]
